FAERS Safety Report 10765595 (Version 1)
Quarter: 2015Q1

REPORT INFORMATION
  Report Type: Other
  Country: DE (occurrence: DE)
  Receive Date: 20150205
  Receipt Date: 20150205
  Transmission Date: 20150721
  Serious: Yes (Congenital Anomaly)
  Sender: FDA-Public Use
  Company Number: DE-ENDO PHARMACEUTICALS INC-ALLO20150002

PATIENT
  Sex: Male

DRUGS (4)
  1. ALLOPURINOL TABLETS 100MG [Suspect]
     Active Substance: ALLOPURINOL
     Indication: FOETAL EXPOSURE DURING PREGNANCY
     Route: 064
  2. PYRIDOXINE [Concomitant]
     Active Substance: PYRIDOXINE
     Indication: FOETAL EXPOSURE DURING PREGNANCY
     Route: 064
  3. SODIUM CARBONATE [Concomitant]
     Active Substance: SODIUM CARBONATE
     Indication: FOETAL EXPOSURE DURING PREGNANCY
     Route: 064
  4. HYDROCHLOROTHIAZIDE. [Concomitant]
     Active Substance: HYDROCHLOROTHIAZIDE
     Indication: FOETAL EXPOSURE DURING PREGNANCY
     Route: 064

REACTIONS (13)
  - Cleft palate [Not Recovered/Not Resolved]
  - Renal hypoplasia [Not Recovered/Not Resolved]
  - Low set ears [Not Recovered/Not Resolved]
  - Retrognathia [Not Recovered/Not Resolved]
  - Cholestasis [Not Recovered/Not Resolved]
  - Hepatosplenomegaly [Not Recovered/Not Resolved]
  - Cerebral ventricle dilatation [Not Recovered/Not Resolved]
  - Cryptorchism [Not Recovered/Not Resolved]
  - Micropenis [Not Recovered/Not Resolved]
  - Osteopenia [Not Recovered/Not Resolved]
  - Microphthalmos [Not Recovered/Not Resolved]
  - Cleft lip [Not Recovered/Not Resolved]
  - Conductive deafness [Not Recovered/Not Resolved]
